FAERS Safety Report 8625044-5 (Version None)
Quarter: 2012Q3

REPORT INFORMATION
  Report Type: 
  Country: None (occurrence: None)
  Receive Date: 20120827
  Receipt Date: 20120816
  Transmission Date: 20120928
  Serious: Yes (Hospitalization)
  Sender: FDA-Public Use
  Company Number: CH-ASTRAZENECA-2012SE60047

PATIENT
  Age: 78 Year
  Sex: Male
  Weight: 74.5 kg

DRUGS (12)
  1. TORSEMIDE [Concomitant]
  2. VI DE [Concomitant]
     Dosage: 4500 UNIT DAILY
     Route: 048
  3. ATORVASTATIN CALCIUM [Concomitant]
  4. ALLOPURINOL [Concomitant]
     Route: 048
     Dates: start: 20120601
  5. ASPIRIN [Concomitant]
  6. CALCIMAGON D3 [Concomitant]
     Route: 048
  7. ALDACTONE [Interacting]
     Indication: HYPERTENSIVE HEART DISEASE
     Route: 048
     Dates: end: 20120621
  8. NEBIVOLOL HCL [Suspect]
     Indication: HYPERTENSIVE HEART DISEASE
     Route: 048
     Dates: end: 20120621
  9. LANTUS [Concomitant]
     Dosage: 20 UNIT DAILY
     Route: 058
  10. HUMALOG [Concomitant]
     Dosage: AS NEEDED
     Route: 058
  11. ATACAND [Interacting]
     Indication: HYPERTENSIVE HEART DISEASE
     Route: 048
     Dates: end: 20120621
  12. MARCUMAR [Concomitant]
     Dosage: AS NEEDED
     Route: 048
     Dates: start: 20120501

REACTIONS (9)
  - NAUSEA [None]
  - HYPERKALAEMIA [None]
  - RENAL FAILURE CHRONIC [None]
  - DYSPNOEA [None]
  - RESPIRATORY DISTRESS [None]
  - BRADYCARDIA [None]
  - HYPOTENSION [None]
  - MALAISE [None]
  - DRUG INTERACTION [None]
